FAERS Safety Report 5765264-0 (Version None)
Quarter: 2008Q2

REPORT INFORMATION
  Report Type: 
  Country: None (occurrence: None)
  Receive Date: 20080609
  Receipt Date: 20080609
  Transmission Date: 20081010
  Serious: No
  Sender: FDA-Public Use
  Company Number: None

PATIENT
  Sex: Female
  Weight: 49.8957 kg

DRUGS (1)
  1. AFRIN [Suspect]
     Indication: NASAL CONGESTION
     Dosage: 2 OR 3 SPRAYS IN EACH NOSTRIL 10-12 HOURS NASAL
     Route: 045
     Dates: start: 20071127, end: 20071127

REACTIONS (2)
  - DYSGEUSIA [None]
  - HYPOSMIA [None]
